FAERS Safety Report 8844419 (Version 1)
Quarter: 2012Q4

REPORT INFORMATION
  Report Type: 
  Country: BR (occurrence: BR)
  Receive Date: 20121017
  Receipt Date: 20121017
  Transmission Date: 20130627
  Serious: Yes (Other)
  Sender: FDA-Public Use
  Company Number: PHHY2012BR091501

PATIENT
  Age: 79 Year
  Sex: Female
  Weight: 69 kg

DRUGS (3)
  1. DIOVAN [Suspect]
     Indication: HYPERTENSION
     Dosage: 1 DF, per day (in the morning)
     Route: 048
  2. ACTONEL [Concomitant]
     Dosage: 1 DF, QMO
     Route: 048
  3. DIOSMIN [Concomitant]
     Indication: VARICOSE VEIN
     Dosage: 1 DF, per day
     Route: 048

REACTIONS (5)
  - Femur fracture [Recovering/Resolving]
  - Oedema peripheral [Recovered/Resolved]
  - Feeling abnormal [Recovering/Resolving]
  - Dizziness [Recovering/Resolving]
  - Headache [Recovering/Resolving]
